FAERS Safety Report 4518922-X (Version None)
Quarter: 2004Q4

REPORT INFORMATION
  Report Type: 
  Country: None (occurrence: None)
  Receive Date: 20041201
  Receipt Date: 20041118
  Transmission Date: 20050328
  Serious: Yes (Hospitalization)
  Sender: FDA-Public Use
  Company Number: 2004227007JP

PATIENT
  Age: 79 Year
  Sex: Female
  Weight: 70 kg

DRUGS (6)
  1. CABERGOLINE [Suspect]
     Indication: PARKINSON'S DISEASE
     Dosage: 1 MG INTERVEL, ORAL
     Route: 048
     Dates: end: 20040830
  2. AMLODIPINE BESYLATE [Concomitant]
  3. SPIRONOLACTONE [Concomitant]
  4. AZOSEMIDE (AZOSEMIDE) [Concomitant]
  5. FAMOTIDINE [Concomitant]
  6. LACTITOL (LACTITOL) [Concomitant]

REACTIONS (5)
  - COMA [None]
  - DELIRIUM [None]
  - DYSTONIA [None]
  - HEPATIC ENCEPHALOPATHY [None]
  - HEPATIC FAILURE [None]
